FAERS Safety Report 16284039 (Version 1)
Quarter: 2019Q2

REPORT INFORMATION
  Report Type: Spontaneous
  Country: CA (occurrence: CA)
  Receive Date: 20190507
  Receipt Date: 20190507
  Transmission Date: 20190711
  Serious: Yes (Other)
  Sender: FDA-Public Use
  Company Number: PHHY2019CA102549

PATIENT
  Age: 65 Year
  Sex: Male

DRUGS (1)
  1. LANSOPRAZOLE. [Suspect]
     Active Substance: LANSOPRAZOLE
     Indication: GASTROOESOPHAGEAL REFLUX DISEASE
     Dosage: 30 MG, UNK
     Route: 065

REACTIONS (7)
  - Pruritus [Unknown]
  - Drug hypersensitivity [Unknown]
  - Urticaria [Unknown]
  - Throat tightness [Unknown]
  - Angioedema [Unknown]
  - Dyspnoea [Unknown]
  - Anaphylactic reaction [Unknown]
